FAERS Safety Report 8880662 (Version 1)
Quarter: 2012Q4

REPORT INFORMATION
  Report Type: 
  Country: IE (occurrence: IE)
  Receive Date: 20121101
  Receipt Date: 20121101
  Transmission Date: 20130627
  Serious: Yes (Hospitalization)
  Sender: FDA-Public Use
  Company Number: IE-ASTRAZENECA-2012SE81217

PATIENT
  Age: 61 Year
  Sex: Male

DRUGS (8)
  1. SEROQUEL [Suspect]
     Indication: PARANOIA
     Dosage: Dose was up-titrated to 100 milligrams
     Route: 048
     Dates: start: 20120523
  2. SEROQUEL [Suspect]
     Indication: PARANOIA
     Route: 048
     Dates: end: 20120813
  3. ATORVASTATIN [Suspect]
     Indication: LIPIDS ABNORMAL
     Route: 065
     Dates: start: 20120711, end: 20120813
  4. BISOP [Concomitant]
     Indication: ANGINA PECTORIS
     Dates: start: 20081029
  5. CAPRIN [Concomitant]
     Indication: ANGINA PECTORIS
     Dates: start: 20091029
  6. COVERSYL [Concomitant]
     Indication: ANGINA PECTORIS
     Dates: start: 20081029
  7. ULCID [Concomitant]
     Indication: PEPTIC ULCER
     Dates: start: 20090421
  8. LIPITOR [Concomitant]
     Dates: end: 20120711

REACTIONS (1)
  - Jaundice [Recovered/Resolved]
